FAERS Safety Report 5123534-3 (Version None)
Quarter: 2006Q3

REPORT INFORMATION
  Report Type: 
  Country: None (occurrence: None)
  Receive Date: 20060801
  Receipt Date: 20060626
  Transmission Date: 20061208
  Serious: Yes (Other)
  Sender: FDA-Public Use
  Company Number: 146341USA

PATIENT
  Age: 57 Year

DRUGS (5)
  1. RIBAVIRIN [Suspect]
     Indication: HEPATITIS C VIRUS
     Dosage: 400 MILLIGRAM BID ORAL
     Route: 048
     Dates: start: 20060217
  2. PEGASYS [Suspect]
     Dosage: 180 1XWK
     Dates: start: 20060217
  3. LISINOPRIL [Concomitant]
  4. ACTOS [Concomitant]
  5. GLYBURIDE [Concomitant]

REACTIONS (5)
  - AGGRESSION [None]
  - ANXIETY [None]
  - FEELING ABNORMAL [None]
  - HOMICIDAL IDEATION [None]
  - IRRITABILITY [None]
